FAERS Safety Report 9170951 (Version 1)
Quarter: 2013Q1

REPORT INFORMATION
  Report Type: Spontaneous
  Country: US (occurrence: US)
  Receive Date: 20130319
  Receipt Date: 20130319
  Transmission Date: 20140127
  Serious: Yes (Other)
  Sender: FDA-Public Use
  Company Number: US-JNJFOC-20130304349

PATIENT
  Sex: Female
  Weight: 65.77 kg

DRUGS (12)
  1. XARELTO [Suspect]
     Indication: CEREBROVASCULAR ACCIDENT PROPHYLAXIS
     Route: 048
     Dates: start: 201207
  2. XARELTO [Suspect]
     Indication: ATRIAL FIBRILLATION
     Route: 048
     Dates: start: 201207
  3. SIMVASTATIN [Concomitant]
     Indication: BLOOD CHOLESTEROL INCREASED
     Route: 048
  4. MOEXIPRIL [Concomitant]
     Indication: HYPERTENSION
     Route: 048
  5. UNIVASC [Concomitant]
     Indication: TACHYCARDIA
     Route: 048
  6. ALENDRONATE [Concomitant]
     Indication: OSTEOPOROSIS PROPHYLAXIS
     Route: 048
  7. PREMARIN [Concomitant]
     Indication: SURGERY
     Route: 048
  8. CALCIUM [Concomitant]
     Indication: OSTEOPOROSIS PROPHYLAXIS
     Route: 048
  9. GLUCOSAMINE/MSM [Concomitant]
     Indication: ARTHRALGIA
     Route: 048
  10. GLUCOSAMINE/MSM [Concomitant]
     Indication: OSTEOPOROSIS PROPHYLAXIS
     Route: 048
  11. VITAMIN C [Concomitant]
     Indication: INFECTION PROPHYLAXIS
     Route: 048
  12. UBIDECARENONE [Concomitant]
     Indication: CARDIAC DISORDER
     Route: 065

REACTIONS (2)
  - Carpal tunnel syndrome [Not Recovered/Not Resolved]
  - Arthralgia [Not Recovered/Not Resolved]
